FAERS Safety Report 10672423 (Version 1)
Quarter: 2014Q4

REPORT INFORMATION
  Report Type: Report from Study
  Country: EG (occurrence: EG)
  Receive Date: 20141223
  Receipt Date: 20141223
  Transmission Date: 20150529
  Serious: Yes (Death)
  Sender: FDA-Public Use
  Company Number: EG-SA-2014SA173580

PATIENT
  Age: 54 Year
  Sex: Female

DRUGS (2)
  1. HUMULIN R [Concomitant]
     Active Substance: INSULIN HUMAN
  2. LANTUS [Suspect]
     Active Substance: INSULIN GLARGINE
     Indication: TYPE 2 DIABETES MELLITUS
     Route: 058
     Dates: start: 20141001

REACTIONS (1)
  - Death [Fatal]

NARRATIVE: CASE EVENT DATE: 20141101
